FAERS Safety Report 8861733 (Version 1)
Quarter: 2012Q4

REPORT INFORMATION
  Report Type: Spontaneous
  Country: US (occurrence: None)
  Receive Date: 20121025
  Receipt Date: 20121025
  Transmission Date: 20130627
  Serious: No
  Sender: FDA-Public Use
  Company Number: None

PATIENT
  Age: 53 Year
  Sex: Male
  Weight: 106.8 kg

DRUGS (1)
  1. SULFACETAMIDE [Suspect]
     Dosage: 2 DROPS  Other  EYE
     Dates: start: 20120807, end: 20120815

REACTIONS (1)
  - Dermatitis contact [None]
